FAERS Safety Report 7282880-8 (Version None)
Quarter: 2011Q1

REPORT INFORMATION
  Report Type: 
  Country: None (occurrence: None)
  Receive Date: 20110128
  Receipt Date: 20110120
  Transmission Date: 20110831
  Serious: Yes (Death)
  Sender: FDA-Public Use
  Company Number: 1000018323

PATIENT
  Age: 69 Year
  Sex: Female

DRUGS (6)
  1. LISINOPRIL [Suspect]
  2. DILTIAZEM (DILTIAZEM HYDROCHLORIDE) [Suspect]
  3. DIGOXIN [Suspect]
  4. CARVEDILOL [Concomitant]
  5. FUROSEMIDE [Suspect]
  6. ALPRAZOLAM [Suspect]

REACTIONS (4)
  - RESPIRATORY ARREST [None]
  - COMPLETED SUICIDE [None]
  - MULTIPLE DRUG OVERDOSE INTENTIONAL [None]
  - CARDIAC ARREST [None]
